FAERS Safety Report 21701839 (Version 1)
Quarter: 2022Q4

REPORT INFORMATION
  Report Type: Report from Study
  Country: US (occurrence: US)
  Receive Date: 20221208
  Receipt Date: 20221208
  Transmission Date: 20230113
  Serious: No
  Sender: FDA-Public Use
  Company Number: US-ABBVIE-4228248

PATIENT
  Sex: Male

DRUGS (1)
  1. VENCLEXTA [Suspect]
     Active Substance: VENETOCLAX
     Indication: Plasma cell myeloma in remission
     Dosage: TAKE 4 TABLETS BY MOUTH TWICE DAILY WITH FOOD AND WATER
     Route: 048

REACTIONS (1)
  - Dyspnoea [Not Recovered/Not Resolved]
